FAERS Safety Report 7451835-2 (Version None)
Quarter: 2011Q2

REPORT INFORMATION
  Report Type: 
  Country: None (occurrence: None)
  Receive Date: 20110502
  Receipt Date: 20100615
  Transmission Date: 20111010
  Serious: No
  Sender: FDA-Public Use
  Company Number: US-ASTRAZENECA-2010SE27956

PATIENT
  Age: 36 Year
  Sex: Female
  Weight: 58.1 kg

DRUGS (1)
  1. NEXIUM [Suspect]
     Route: 048

REACTIONS (12)
  - INSOMNIA [None]
  - ABNORMAL SENSATION IN EYE [None]
  - PHOTOPHOBIA [None]
  - ANXIETY [None]
  - MUSCLE CONTRACTIONS INVOLUNTARY [None]
  - DIZZINESS [None]
  - MYALGIA [None]
  - PARAESTHESIA [None]
  - TREMOR [None]
  - EYE PAIN [None]
  - CHEST PAIN [None]
  - NECK PAIN [None]
